FAERS Safety Report 21566192 (Version 2)
Quarter: 2022Q4

REPORT INFORMATION
  Report Type: Spontaneous
  Country: US (occurrence: US)
  Receive Date: 20221108
  Receipt Date: 20221215
  Transmission Date: 20230113
  Serious: Yes (Other)
  Sender: FDA-Public Use
  Company Number: US-NOVOPROD-884883

PATIENT
  Age: 69 Year
  Sex: Female

DRUGS (2)
  1. FIASP [Suspect]
     Active Substance: INSULIN ASPART
     Indication: Type 2 diabetes mellitus
     Dosage: 70 IU, QD
     Route: 058
     Dates: start: 20220119, end: 20220119
  2. LEVEMIR [Suspect]
     Active Substance: INSULIN DETEMIR
     Indication: Type 2 diabetes mellitus
     Dosage: 70 IU, QD
     Route: 058
     Dates: start: 2014

REACTIONS (3)
  - Blood glucose decreased [Recovered/Resolved]
  - Wrong product administered [Recovered/Resolved]
  - Product dispensing error [Recovered/Resolved]

NARRATIVE: CASE EVENT DATE: 20220120
